FAERS Safety Report 6819662-4 (Version None)
Quarter: 2010Q3

REPORT INFORMATION
  Report Type: 
  Country: None (occurrence: None)
  Receive Date: 20100707
  Receipt Date: 20100630
  Transmission Date: 20110219
  Serious: Yes (Other)
  Sender: FDA-Public Use
  Company Number: IE-BRISTOL-MYERS SQUIBB COMPANY-15012545

PATIENT
  Sex: Male
  Weight: 3 kg

DRUGS (5)
  1. ATAZANAVIR [Suspect]
     Route: 064
  2. RITONAVIR [Suspect]
     Route: 064
  3. KIVEXA [Suspect]
     Route: 064
  4. HEROIN [Suspect]
     Route: 064
  5. CITALOPRAM HYDROBROMIDE [Suspect]
     Route: 064

REACTIONS (3)
  - CAESAREAN SECTION [None]
  - MATERNAL DRUGS AFFECTING FOETUS [None]
  - VENTRICULAR SEPTAL DEFECT [None]
